FAERS Safety Report 11629162 (Version 1)
Quarter: 2015Q4

REPORT INFORMATION
  Report Type: Spontaneous
  Country: US (occurrence: None)
  Receive Date: 20151013
  Receipt Date: 20151013
  Transmission Date: 20160304
  Serious: Yes (Hospitalization)
  Sender: FDA-Public Use
  Company Number: None

PATIENT
  Age: 16 Year
  Sex: Female
  Weight: 83.6 kg

DRUGS (9)
  1. TOPAMAX [Concomitant]
     Active Substance: TOPIRAMATE
  2. STEROID TAPER [Concomitant]
  3. LAMICTAL [Suspect]
     Active Substance: LAMOTRIGINE
     Indication: MIGRAINE
     Route: 048
     Dates: start: 20150827, end: 20151005
  4. ELAVIL [Concomitant]
     Active Substance: AMITRIPTYLINE HYDROCHLORIDE
  5. Z-PACK (ZITHROMYCIN) [Concomitant]
  6. SUMATRIPTAN. [Concomitant]
     Active Substance: SUMATRIPTAN
  7. ALBUTEROL INHALER [Concomitant]
     Active Substance: ALBUTEROL
  8. ORAL CONTRACEPTIVE (AMETHIA LO) [Concomitant]
  9. LAMICTAL [Suspect]
     Active Substance: LAMOTRIGINE
     Indication: STATUS EPILEPTICUS
     Route: 048
     Dates: start: 20150827, end: 20151005

REACTIONS (12)
  - Dysgeusia [None]
  - Dehydration [None]
  - Dyspnoea [None]
  - Conjunctivitis [None]
  - Dysphonia [None]
  - Dermatitis exfoliative [None]
  - Oropharyngeal pain [None]
  - Blister [None]
  - Hypophagia [None]
  - Tachypnoea [None]
  - Pruritus [None]
  - Burning sensation [None]

NARRATIVE: CASE EVENT DATE: 20151008
